FAERS Safety Report 22661915 (Version 2)
Quarter: 2023Q4

REPORT INFORMATION
  Report Type: Spontaneous
  Country: US (occurrence: US)
  Receive Date: 20230630
  Receipt Date: 20231230
  Transmission Date: 20240110
  Serious: No
  Sender: FDA-Public Use
  Company Number: US-INSUD PHARMA-2306US04084

PATIENT

DRUGS (2)
  1. SLYND [Suspect]
     Active Substance: DROSPIRENONE
     Indication: Heavy menstrual bleeding
     Dosage: UNK
     Dates: start: 202312
  2. SLYND [Suspect]
     Active Substance: DROSPIRENONE
     Dosage: UNK
     Dates: end: 2023

REACTIONS (3)
  - Fatigue [Not Recovered/Not Resolved]
  - Heavy menstrual bleeding [Unknown]
  - Amenorrhoea [Recovered/Resolved]

NARRATIVE: CASE EVENT DATE: 20230101
